FAERS Safety Report 15276603 (Version 3)
Quarter: 2018Q3

REPORT INFORMATION
  Report Type: Report from Study
  Country: FR (occurrence: FR)
  Receive Date: 20180814
  Receipt Date: 20180905
  Transmission Date: 20181010
  Serious: Yes (Death, Hospitalization)
  Sender: FDA-Public Use
  Company Number: FR-PFIZER INC-2018320089

PATIENT
  Age: 63 Year
  Sex: Male
  Weight: 75 kg

DRUGS (17)
  1. ZOMETA [Concomitant]
     Active Substance: ZOLEDRONIC ACID
     Indication: HYPERCALCAEMIA
     Dosage: UNK
     Dates: start: 201808, end: 201808
  2. SMECTALIA [Concomitant]
     Indication: DIARRHOEA
     Dosage: UNK
     Dates: start: 201805
  3. POLYIONIQUE B 27 [Concomitant]
     Indication: DEHYDRATION
     Dosage: UNK
     Dates: start: 201807, end: 201807
  4. LOVENOX [Concomitant]
     Active Substance: ENOXAPARIN SODIUM
     Indication: THROMBOSIS PROPHYLAXIS
     Dosage: UNK
     Dates: start: 201807, end: 201807
  5. LYSANXIA [Concomitant]
     Active Substance: PRAZEPAM
     Indication: ANXIOLYTIC THERAPY
     Dosage: UNK
     Dates: start: 201808
  6. SUTENT [Suspect]
     Active Substance: SUNITINIB MALATE
     Dosage: 50 MG, CYCLIC (2 WEEKS ON, 1 WEEK OFF)
     Dates: start: 201805, end: 201807
  7. TAHOR [Concomitant]
     Active Substance: ATORVASTATIN CALCIUM
     Indication: DYSLIPIDAEMIA
     Dosage: UNK
  8. DECAN [Concomitant]
     Indication: PARENTERAL NUTRITION
     Dosage: UNK
     Dates: start: 201607, end: 201807
  9. CERNEVIT [ASCORBIC ACID;BIOTIN;COCARBOXYLASE TETRAHYDRATE;COLECALCIFER [Concomitant]
     Indication: VITAMIN SUPPLEMENTATION
     Dosage: UNK
     Dates: start: 201806, end: 201807
  10. MACROGOL [Concomitant]
     Active Substance: POLYETHYLENE GLYCOLS
     Indication: CONSTIPATION
     Dosage: UNK
     Dates: start: 201807
  11. METHYLPREDNISOLONE. [Concomitant]
     Active Substance: METHYLPREDNISOLONE
     Indication: INFLAMMATION
     Dosage: UNK
     Dates: start: 201807, end: 201807
  12. TOPALGIC [Concomitant]
     Indication: ANALGESIC THERAPY
     Dosage: UNK
     Dates: start: 201807, end: 201807
  13. TRANXENE [Concomitant]
     Active Substance: CLORAZEPATE DIPOTASSIUM
     Indication: ANXIOLYTIC THERAPY
     Dosage: UNK
     Dates: start: 201808, end: 201808
  14. PERFALGAN [Concomitant]
     Active Substance: ACETAMINOPHEN
     Indication: PAIN
     Dosage: UNK
     Dates: start: 201807, end: 201808
  15. POLYIONIQUE B 27 [Concomitant]
     Indication: MALNUTRITION
  16. POLYIONIQUE B 27 [Concomitant]
     Indication: ELECTROLYTE IMBALANCE
  17. MORPHINE HYDROCHLORIDE TRIHYDRATE [Concomitant]
     Active Substance: MORPHINE HYDROCHLORIDE
     Indication: PAIN
     Dosage: UNK
     Dates: start: 201808

REACTIONS (4)
  - Neoplasm progression [Fatal]
  - General physical health deterioration [Recovered/Resolved]
  - Asthenia [Recovering/Resolving]
  - Stomatitis [Not Recovered/Not Resolved]

NARRATIVE: CASE EVENT DATE: 20180613
